FAERS Safety Report 9515690 (Version 1)
Quarter: 2013Q1

REPORT INFORMATION
  Report Type: Spontaneous
  Country: US (occurrence: None)
  Receive Date: 20130305
  Receipt Date: 20130305
  Transmission Date: 20140127
  Serious: Yes (Hospitalization)
  Sender: FDA-Public Use
  Company Number: 163-21880-12050765

PATIENT
  Age: 66 Year
  Sex: Male

DRUGS (23)
  1. REVLIMID [Suspect]
     Indication: PLASMA CELL MYELOMA
     Dosage: 25 MG, DAILY X 21 DAYS, REST 7D, PO
     Route: 048
     Dates: start: 20120328, end: 20120421
  2. TRANSFUSION (BLOOD AND RELATED PRODUCTS) [Concomitant]
  3. PACKED RED BLOOD CELLS (RED BLOOD CELLS) [Concomitant]
  4. METOLAZONE [Concomitant]
  5. FUROSEMIDE [Concomitant]
  6. KCL (POTASSIUM CHLORIDE) [Concomitant]
  7. SPIRONOLACTONE [Concomitant]
  8. DIOVAN (VALSARTAN) [Concomitant]
  9. DIGOXIN [Concomitant]
  10. CENTRUM SILVER [Concomitant]
  11. ZYRTEC (CETIRIZINE HYDROCHLORIDE) [Concomitant]
  12. CALCIUM + VITAMIN D (LEKOVIT CA) [Concomitant]
  13. PRILOSEC [Concomitant]
  14. FISH OIL [Concomitant]
  15. METOPROLOL EXTENDED RELEASE (METOPROLOL TARTRATE) [Concomitant]
  16. SIMVASTATIN [Concomitant]
  17. WARFARIN [Concomitant]
  18. ZOLOFT (SERTRALINE HYDROCHLORIDE) [Concomitant]
  19. TRAZODONE [Concomitant]
  20. ASPIRIN (ACETYLSALICYLIC ACID) [Concomitant]
  21. FLUTICASONE [Concomitant]
  22. HEPARIN [Concomitant]
  23. LOVENOX (HEPARIN-FRACTION, SODIUM SALT) [Concomitant]

REACTIONS (6)
  - Cardiac failure congestive [None]
  - Haemoglobin decreased [None]
  - Renal failure [None]
  - Hypotension [None]
  - White blood cell count increased [None]
  - Blood potassium increased [None]
